FAERS Safety Report 9135333 (Version 2)
Quarter: 2013Q3

REPORT INFORMATION
  Report Type: Spontaneous
  Country: US (occurrence: US)
  Receive Date: 20130304
  Receipt Date: 20130709
  Transmission Date: 20140515
  Serious: Yes (Hospitalization, Other)
  Sender: FDA-Public Use
  Company Number: US-PFIZER INC-2013069306

PATIENT
  Age: 57 Year
  Sex: Male
  Weight: 57 kg

DRUGS (2)
  1. BENEFIX [Suspect]
     Indication: FACTOR IX DEFICIENCY
     Dosage: 100 IU/KG, 2X/WEEK (FOR PROPHYLACTIC USE)
  2. BENEFIX [Suspect]
     Indication: PROPHYLAXIS
     Dosage: 80 IU/KG, AS NEEDED (ON-DEMAND USE PER INFUSION)

REACTIONS (4)
  - Disease complication [Unknown]
  - Haemorrhage [Unknown]
  - Off label use [Unknown]
  - Arthropathy [Unknown]
